FAERS Safety Report 9461874 (Version 1)
Quarter: 2013Q3

REPORT INFORMATION
  Report Type: Spontaneous
  Country: US (occurrence: US)
  Receive Date: 20130816
  Receipt Date: 20130816
  Transmission Date: 20140515
  Serious: Yes (Other)
  Sender: FDA-Public Use
  Company Number: PHEH2013US016766

PATIENT
  Sex: Female

DRUGS (13)
  1. AFINITOR [Suspect]
     Indication: BREAST CANCER
     Dosage: 10 MG, QD
     Route: 048
     Dates: start: 20120427, end: 201208
  2. AFINITOR [Suspect]
     Dosage: 5 MG, QD
     Route: 048
     Dates: start: 201208
  3. AROMASIN [Concomitant]
     Dosage: 25 MG, UNK
     Route: 048
  4. ARIMIDEX [Concomitant]
  5. TEMAZEPAM [Concomitant]
  6. CALCIUM + VITAMIN D                /01483701/ [Concomitant]
  7. VITAMIN D [Concomitant]
     Dosage: 400 IU, UNK
  8. BIOTIN [Concomitant]
     Dosage: 1000 UG, QD
  9. FISH OIL [Concomitant]
  10. VITAMIIN C [Concomitant]
     Dosage: 1000 MG, UNK
  11. DUOCLOX                            /00372401/ [Concomitant]
  12. FLEET                                   /DEN/ [Concomitant]
  13. SENNOSIDE [Concomitant]
     Dosage: 8.6 MG, UNK

REACTIONS (37)
  - Amnesia [Unknown]
  - Confusional state [Unknown]
  - Feeling abnormal [Unknown]
  - Depression [Unknown]
  - Faecaloma [Unknown]
  - Hair texture abnormal [Unknown]
  - Nail disorder [Unknown]
  - Onychoclasis [Unknown]
  - Aggression [Unknown]
  - Hypoaesthesia [Unknown]
  - Muscle spasms [Unknown]
  - Paraesthesia [Unknown]
  - Back pain [Unknown]
  - Stomatitis [Unknown]
  - Vomiting [Unknown]
  - Nausea [Unknown]
  - Cough [Unknown]
  - Wheezing [Unknown]
  - Hypersensitivity [Unknown]
  - Urinary tract infection [Unknown]
  - Dysuria [Unknown]
  - Mouth ulceration [Unknown]
  - Decreased appetite [Unknown]
  - Fatigue [Unknown]
  - Rash [Unknown]
  - Nasopharyngitis [Unknown]
  - Chills [Unknown]
  - Dry skin [Unknown]
  - Local swelling [Unknown]
  - Glossodynia [Unknown]
  - Dry mouth [Unknown]
  - Arthralgia [Unknown]
  - Epistaxis [Unknown]
  - Headache [Unknown]
  - Blood pressure increased [Unknown]
  - Insomnia [Unknown]
  - Alopecia [Unknown]
